FAERS Safety Report 14400319 (Version 1)
Quarter: 2018Q1

REPORT INFORMATION
  Report Type: Spontaneous
  Country: US (occurrence: US)
  Receive Date: 20180117
  Receipt Date: 20180117
  Transmission Date: 20180509
  Serious: Yes (Other)
  Sender: FDA-Public Use
  Company Number: PHEH2018US001323

PATIENT

DRUGS (2)
  1. MIDOSTAURIN [Suspect]
     Active Substance: MIDOSTAURIN
     Indication: ACUTE MYELOID LEUKAEMIA
     Dosage: 50 MG, BID
     Route: 048
  2. POSACONAZOLE [Interacting]
     Active Substance: POSACONAZOLE
     Indication: PROPHYLAXIS
     Route: 065

REACTIONS (2)
  - Oedema peripheral [Recovered/Resolved]
  - Drug interaction [Unknown]
